FAERS Safety Report 7288694-7 (Version None)
Quarter: 2011Q1

REPORT INFORMATION
  Report Type: 
  Country: None (occurrence: None)
  Receive Date: 20110211
  Receipt Date: 20110209
  Transmission Date: 20110831
  Serious: Yes (Other)
  Sender: FDA-Public Use
  Company Number: IE-AMGEN-IRLSP2011007855

PATIENT
  Age: 74 Year
  Sex: Female

DRUGS (8)
  1. NEULASTA [Suspect]
     Indication: PRODUCT USED FOR UNKNOWN INDICATION
     Dosage: 6 MG, 3 TIMES/WK
     Dates: end: 20110120
  2. DEXAMETHASONE [Concomitant]
  3. CARDURA [Concomitant]
  4. DICLOFENAC [Concomitant]
  5. FUROSEMIDE [Concomitant]
  6. NU-SEALS ASPIRIN [Concomitant]
  7. ZOFRAN [Concomitant]
  8. MOTILIUM                           /00498201/ [Concomitant]

REACTIONS (2)
  - PAIN [None]
  - DIARRHOEA [None]
